FAERS Safety Report 25408125 (Version 1)
Quarter: 2025Q2

REPORT INFORMATION
  Report Type: Spontaneous
  Country: US (occurrence: US)
  Receive Date: 20250606
  Receipt Date: 20250606
  Transmission Date: 20250717
  Serious: No
  Sender: SANOFI AVENTIS
  Company Number: US-SA-2025SA160942

PATIENT
  Age: 69 Year
  Sex: Male

DRUGS (14)
  1. REZUROCK [Suspect]
     Active Substance: BELUMOSUDIL
     Indication: Myelodysplastic syndrome
     Dosage: 200 MG, QD
     Route: 048
     Dates: start: 202503
  2. CALCIUM\MAGNESIUM [Concomitant]
     Active Substance: CALCIUM\MAGNESIUM
  3. DAPSONE [Concomitant]
     Active Substance: DAPSONE
  4. ELIQUIS [Concomitant]
     Active Substance: APIXABAN
  5. FLUOCINONIDE [Concomitant]
     Active Substance: FLUOCINONIDE
  6. K PHOS NEUTRAL [Concomitant]
     Active Substance: POTASSIUM PHOSPHATE, MONOBASIC\SODIUM PHOSPHATE, DIBASIC, ANHYDROUS\SODIUM PHOSPHATE, MONOBASIC, MON
  7. ONDANSETRON [Concomitant]
     Active Substance: ONDANSETRON
  8. PREVYMIS [Concomitant]
     Active Substance: LETERMOVIR
  9. PROCHLORPERAZINE MALEATE [Concomitant]
     Active Substance: PROCHLORPERAZINE MALEATE
  10. REFRESH PLUS [Concomitant]
     Active Substance: CARBOXYMETHYLCELLULOSE SODIUM
  11. RESTASIS [Concomitant]
     Active Substance: CYCLOSPORINE
  12. SIROLIMUS [Concomitant]
     Active Substance: SIROLIMUS
  13. TACROLIMUS [Concomitant]
     Active Substance: TACROLIMUS
  14. VALACYCLOVIR [Concomitant]
     Active Substance: VALACYCLOVIR HYDROCHLORIDE

REACTIONS (1)
  - Product use in unapproved indication [Unknown]

NARRATIVE: CASE EVENT DATE: 20250301
